FAERS Safety Report 4655130-6 (Version None)
Quarter: 2005Q2

REPORT INFORMATION
  Report Type: 
  Country: None (occurrence: None)
  Receive Date: 20050506
  Receipt Date: 20050428
  Transmission Date: 20051028
  Serious: Yes (Life-Threatening, Hospitalization)
  Sender: FDA-Public Use
  Company Number: US-BRISTOL-MYERS SQUIBB COMPANY-12951869

PATIENT
  Sex: Male

DRUGS (2)
  1. REYATAZ [Suspect]
     Indication: HIV INFECTION
  2. REYATAZ [Suspect]
     Indication: MULTIPLE-DRUG RESISTANCE

REACTIONS (2)
  - BILIARY COLIC [None]
  - CHOLECYSTITIS [None]
